FAERS Safety Report 17577008 (Version 1)
Quarter: 2020Q1

REPORT INFORMATION
  Report Type: Spontaneous
  Country: US (occurrence: US)
  Receive Date: 20200319
  Receipt Date: 20200319
  Transmission Date: 20200409
  Serious: No
  Sender: FDA-Public Use
  Company Number: None

PATIENT
  Sex: Male

DRUGS (2)
  1. BUMETANIDE (BUMETANIDE 1MG TAB) [Suspect]
     Active Substance: BUMETANIDE
     Indication: HYPERTENSION
     Route: 048
     Dates: start: 20191210, end: 20200125
  2. HYDRALAZINE (HYDRALAZINE HCL 50MG/ML INJ ) [Suspect]
     Active Substance: HYDRALAZINE HYDROCHLORIDE
     Indication: HYPERTENSION
     Route: 048
     Dates: start: 20191210, end: 20200125

REACTIONS (8)
  - Fall [None]
  - Hypotension [None]
  - Asthenia [None]
  - Sepsis [None]
  - Anaemia [None]
  - Cardiac failure [None]
  - Infection [None]
  - Shock [None]

NARRATIVE: CASE EVENT DATE: 20200125
